FAERS Safety Report 23816362 (Version 1)
Quarter: 2024Q2

REPORT INFORMATION
  Report Type: Spontaneous
  Country: FR (occurrence: None)
  Receive Date: 20240503
  Receipt Date: 20240503
  Transmission Date: 20240715
  Serious: Yes (Death, Life-Threatening, Hospitalization, Other)
  Sender: FDA-Public Use
  Company Number: 2024A055954

PATIENT
  Age: 34 Year
  Sex: Male
  Weight: 79 kg

DRUGS (31)
  1. QUETIAPINE FUMARATE [Suspect]
     Active Substance: QUETIAPINE FUMARATE
     Dates: start: 20160830, end: 2016
  2. PAROXETINE MESYLATE [Interacting]
     Active Substance: PAROXETINE MESYLATE
     Indication: Back pain
     Dosage: PAROXETINE 20 MG/UNK THERAPY START DATE: //2016 THERAPY END DATE: //2016
     Dates: start: 20160817, end: 2016
  3. ETIFOXINE [Suspect]
     Active Substance: ETIFOXINE
     Dates: start: 20160810, end: 2016
  4. ARTANE [Suspect]
     Active Substance: TRIHEXYPHENIDYL HYDROCHLORIDE
     Indication: Product used for unknown indication
     Dosage: UNK
     Dates: start: 20160810, end: 2016
  5. NIFUROXAZIDE [Suspect]
     Active Substance: NIFUROXAZIDE
     Indication: Product used for unknown indication
     Dosage: UNK
     Dates: start: 2016, end: 2016
  6. THIOCOLCHICOSIDE [Suspect]
     Active Substance: THIOCOLCHICOSIDE
     Indication: Product used for unknown indication
     Dosage: UNK
     Dates: start: 2016, end: 2016
  7. IBUPROFEN [Suspect]
     Active Substance: IBUPROFEN
     Indication: Back pain
     Dosage: UNK THERAPY START DATE: //2016 THERAPY END DATE: //2016
     Route: 048
     Dates: start: 2016, end: 2016
  8. MIANSERIN HYDROCHLORIDE [Suspect]
     Active Substance: MIANSERIN HYDROCHLORIDE
     Indication: Back pain
     Dosage: UNK THERAPY START DATE: //2016 THERAPY END DATE: //2016
     Dates: start: 2016, end: 2016
  9. PAROXETINE HYDROCHLORIDE [Suspect]
     Active Substance: PAROXETINE HYDROCHLORIDE\PAROXETINE HYDROCHLORIDE ANHYDROUS
     Indication: Back pain
     Dosage: PAROXETINE 20 MG/UNK THERAPY START DATE: //2016 THERAPY END DATE: //2016
     Dates: start: 20160829, end: 2016
  10. CODEINE PHOSPHATE\IBUPROFEN [Suspect]
     Active Substance: CODEINE PHOSPHATE\IBUPROFEN
     Indication: Product used for unknown indication
     Dosage: UNK
     Dates: start: 20160902, end: 2016
  11. QUETIAPINE [Interacting]
     Active Substance: QUETIAPINE
  12. KETAMINE [Suspect]
     Active Substance: KETAMINE
     Indication: Back pain
     Dosage: UNK THERAPY START DATE: //2016 THERAPY END DATE: //2016
     Dates: start: 2016, end: 2016
  13. CLONAZEPAM [Interacting]
     Active Substance: CLONAZEPAM
  14. CLOTIAZEPAM [Interacting]
     Active Substance: CLOTIAZEPAM
     Dates: start: 20160830, end: 2016
  15. SKENAN [Interacting]
     Active Substance: MORPHINE SULFATE
     Dates: start: 20160902, end: 20160905
  16. ACETAMINOPHEN\CODEINE PHOSPHATE [Interacting]
     Active Substance: ACETAMINOPHEN\CODEINE PHOSPHATE
     Dates: start: 2016, end: 2016
  17. OXYCONTIN [Interacting]
     Active Substance: OXYCODONE HYDROCHLORIDE
     Indication: Product used for unknown indication
  18. TRAMADOL HYDROCHLORIDE [Interacting]
     Active Substance: TRAMADOL HYDROCHLORIDE
     Indication: Back pain
     Dosage: UNK THERAPY START DATE: //2016 THERAPY END DATE: //2016
     Dates: start: 20160903, end: 2016
  19. CLOBAZAM [Interacting]
     Active Substance: CLOBAZAM
     Indication: Product used for unknown indication
     Dosage: UNK
     Dates: start: 20160824, end: 2016
  20. PRAZEPAM [Interacting]
     Active Substance: PRAZEPAM
     Dates: start: 20160902, end: 2016
  21. FENTANYL [Interacting]
     Active Substance: FENTANYL\FENTANYL CITRATE
     Indication: Back pain
     Dosage: UNK THERAPY START DATE: //2016 THERAPY END DATE: //2016/DUROGESIC
     Route: 062
     Dates: start: 20160726, end: 2016
  22. VALIUM [Concomitant]
     Active Substance: DIAZEPAM
     Indication: Depression
     Dosage: UNK
  23. VALIUM [Concomitant]
     Active Substance: DIAZEPAM
     Indication: Psychiatric symptom
     Dosage: UNK
  24. OXAZEPAM [Concomitant]
     Active Substance: OXAZEPAM
     Indication: Depression
     Dosage: UNK
  25. OXAZEPAM [Concomitant]
     Active Substance: OXAZEPAM
     Indication: Psychiatric symptom
     Dosage: UNK
  26. ALPRAZOLAM [Concomitant]
     Active Substance: ALPRAZOLAM
     Indication: Psychiatric symptom
     Dosage: UNK
  27. ALPRAZOLAM [Concomitant]
     Active Substance: ALPRAZOLAM
     Indication: Depression
     Dosage: UNK
  28. AMISULPRIDE [Concomitant]
     Active Substance: AMISULPRIDE
     Indication: Depression
     Dosage: UNK
  29. AMISULPRIDE [Concomitant]
     Active Substance: AMISULPRIDE
     Indication: Psychiatric symptom
     Dosage: UNK
  30. ZOPICLONE [Concomitant]
     Active Substance: ZOPICLONE
     Indication: Psychiatric symptom
     Dosage: UNK
  31. ZOPICLONE [Concomitant]
     Active Substance: ZOPICLONE
     Indication: Depression
     Dosage: UNK

REACTIONS (30)
  - Hepatitis acute [Fatal]
  - Cholecystitis infective [Fatal]
  - Cardiomyopathy [Fatal]
  - Accidental poisoning [Fatal]
  - Overdose [Fatal]
  - Jaundice [Fatal]
  - Coma [Fatal]
  - Encephalopathy [Fatal]
  - Respiratory depression [Fatal]
  - White blood cell count increased [Fatal]
  - Hepatic enzyme increased [Fatal]
  - Pancreas infection [Fatal]
  - Myocarditis [Fatal]
  - Coronary artery stenosis [Fatal]
  - Hepatic cytolysis [Fatal]
  - Drug screen false positive [Fatal]
  - Confusional state [Fatal]
  - Hyperglycaemia [Fatal]
  - Labelled drug-drug interaction issue [Fatal]
  - Somnolence [Fatal]
  - Myocardial infarction [Fatal]
  - Toxicity to various agents [Fatal]
  - Cardiac disorder [Unknown]
  - Synovitis [Unknown]
  - Cardio-respiratory arrest [Fatal]
  - Inflammation [Unknown]
  - Hypersomnia [Unknown]
  - Leukocytosis [Unknown]
  - Stenosis [Fatal]
  - Pulmonary oedema [Fatal]

NARRATIVE: CASE EVENT DATE: 20160101
